FAERS Safety Report 8571436-2 (Version None)
Quarter: 2012Q3

REPORT INFORMATION
  Report Type: 
  Country: None (occurrence: None)
  Receive Date: 20120806
  Receipt Date: 20120726
  Transmission Date: 20120928
  Serious: Yes (Other)
  Sender: FDA-Public Use
  Company Number: CA-JNJFOC-20120713668

PATIENT
  Sex: Female

DRUGS (5)
  1. METHOTREXATE [Concomitant]
     Route: 065
  2. REMICADE [Suspect]
     Indication: CROHN'S DISEASE
     Route: 042
     Dates: start: 20110601
  3. REMICADE [Suspect]
     Dosage: LAST INFLIXIMAB INFUSION
     Route: 042
     Dates: start: 20120622
  4. PANTOPRAZOLE SODIUM [Concomitant]
     Route: 065
  5. FLUOXETINE HCL [Concomitant]
     Route: 065

REACTIONS (1)
  - INTESTINAL RESECTION [None]
